FAERS Safety Report 21068153 (Version 1)
Quarter: 2022Q3

REPORT INFORMATION
  Report Type: Spontaneous
  Country: US (occurrence: None)
  Receive Date: 20220711
  Receipt Date: 20220711
  Transmission Date: 20221026
  Serious: No
  Sender: FDA-Public Use
  Company Number: None

PATIENT
  Age: 59 Year
  Sex: Male

DRUGS (1)
  1. DIMETHYL FUMARATE [Suspect]
     Active Substance: DIMETHYL FUMARATE
     Dosage: 240MG BID  ORAL?
     Route: 048
     Dates: start: 2020

REACTIONS (3)
  - Flushing [None]
  - Gait inability [None]
  - Dysstasia [None]

NARRATIVE: CASE EVENT DATE: 20220702
